FAERS Safety Report 19868747 (Version 1)
Quarter: 2021Q3

REPORT INFORMATION
  Report Type: Spontaneous
  Country: CN (occurrence: CN)
  Receive Date: 20210921
  Receipt Date: 20210921
  Transmission Date: 20211014
  Serious: Yes (Hospitalization)
  Sender: FDA-Public Use
  Company Number: CN-BAXTER-2021BAX024553

PATIENT
  Age: 44 Year
  Sex: Female
  Weight: 51 kg

DRUGS (4)
  1. 0.9% SODIUM CHLORIDE INJECTION [Suspect]
     Active Substance: SODIUM CHLORIDE
     Dosage: 0.9% NS 100 ML + EPIRUBICIN HYDROCHLORIDE 130 MG; DAY 1
     Route: 041
     Dates: start: 20191008, end: 20191008
  2. 0.9% SODIUM CHLORIDE INJECTION [Suspect]
     Active Substance: SODIUM CHLORIDE
     Indication: MEDICATION DILUTION
     Dosage: ROUTE: INTRA?PUMP INJECTION; 0.9% NS 30 ML + ENDOXAN 0.9 G VIA MICRO PUMP INJECTION; DAY 1
     Route: 050
     Dates: start: 20191008, end: 20191008
  3. PHARMORUBICIN [Suspect]
     Active Substance: EPIRUBICIN
     Indication: BREAST CANCER FEMALE
     Dosage: 0.9% NS 100 ML + EPIRUBICIN HYDROCHLORIDE 130 MG; DAY 1
     Route: 041
     Dates: start: 20191008, end: 20191008
  4. ENDOXAN [Suspect]
     Active Substance: CYCLOPHOSPHAMIDE
     Indication: BREAST CANCER FEMALE
     Dosage: ROUTE: INTRA?PUMP INJECTION; 0.9% NS 30 ML + ENDOXAN 0.9 G VIA MICRO PUMP INJECTION; DAY 1
     Route: 050
     Dates: start: 20191008, end: 20191008

REACTIONS (2)
  - White blood cell count decreased [Recovering/Resolving]
  - Neutrophil count decreased [Recovering/Resolving]

NARRATIVE: CASE EVENT DATE: 20191011
